FAERS Safety Report 19587974 (Version 9)
Quarter: 2021Q3

REPORT INFORMATION
  Report Type: Report from Study
  Country: AU (occurrence: AU)
  Receive Date: 20210721
  Receipt Date: 20210921
  Transmission Date: 20211014
  Serious: Yes (Hospitalization)
  Sender: FDA-Public Use
  Company Number: AU-EISAI MEDICAL RESEARCH-EC-2021-096385

PATIENT
  Age: 54 Year
  Sex: Male
  Weight: 82.7 kg

DRUGS (24)
  1. LENVATINIB [Suspect]
     Active Substance: LENVATINIB
     Route: 048
     Dates: start: 20210724
  2. LYRICA [Concomitant]
     Active Substance: PREGABALIN
     Dates: start: 20200713, end: 20210716
  3. SPAN?K [Concomitant]
     Active Substance: POTASSIUM CHLORIDE
     Dates: start: 201801
  4. COLOXYL WITH SENNA [DOCUSATE SODIUM;SENNOSIDE B] [Concomitant]
     Dates: start: 20210629, end: 20210721
  5. CENTRUM PLUS [Concomitant]
     Active Substance: VITAMINS
     Dosage: WAFER
     Dates: start: 201801
  6. NATRILIX [INDAPAMIDE] [Concomitant]
     Active Substance: INDAPAMIDE
     Dates: start: 201501
  7. PERINDOPRIL ARGININE [Concomitant]
     Active Substance: PERINDOPRIL ARGININE
     Dates: start: 201501
  8. TARGIN [Concomitant]
     Active Substance: NALOXONE HYDROCHLORIDE\OXYCODONE HYDROCHLORIDE
     Dates: start: 20210624
  9. PANADOL [Concomitant]
     Active Substance: ACETAMINOPHEN
     Dates: start: 20210706
  10. TARGIN [Concomitant]
     Active Substance: NALOXONE HYDROCHLORIDE\OXYCODONE HYDROCHLORIDE
     Dates: start: 20210624
  11. NORVASC [Concomitant]
     Active Substance: AMLODIPINE BESYLATE
     Dates: start: 201501, end: 20210801
  12. ESOMEPRAZOLE. [Concomitant]
     Active Substance: ESOMEPRAZOLE MAGNESIUM
     Dates: start: 202010
  13. PEMBROLIZUMAB. [Suspect]
     Active Substance: PEMBROLIZUMAB
     Indication: RENAL CELL CARCINOMA
     Route: 042
     Dates: start: 20210618, end: 20210618
  14. CALCIUM CARBONATE. [Concomitant]
     Active Substance: CALCIUM CARBONATE
     Dates: start: 201801
  15. LENVATINIB [Suspect]
     Active Substance: LENVATINIB
     Indication: RENAL CELL CARCINOMA
     Route: 048
     Dates: start: 20210618, end: 20210712
  16. LEVOTHYROXINE SODIUM. [Concomitant]
     Active Substance: LEVOTHYROXINE SODIUM
     Dates: start: 201801
  17. PEMBROLIZUMAB. [Suspect]
     Active Substance: PEMBROLIZUMAB
     Route: 042
     Dates: start: 20210730
  18. MAGMIN [Concomitant]
     Active Substance: MAGNESIUM ASPARTATE
     Dates: start: 201801
  19. TARGIN [Concomitant]
     Active Substance: NALOXONE HYDROCHLORIDE\OXYCODONE HYDROCHLORIDE
     Dates: start: 20200701, end: 20210707
  20. PRAZOSIN. [Concomitant]
     Active Substance: PRAZOSIN
     Dates: start: 20210625, end: 20210713
  21. MS CONTIN [Concomitant]
     Active Substance: MORPHINE SULFATE
     Dates: start: 20210710, end: 20210715
  22. LENVATINIB [Suspect]
     Active Substance: LENVATINIB
     Route: 048
     Dates: start: 20210716, end: 20210721
  23. ENDONE [Concomitant]
     Active Substance: OXYCODONE HYDROCHLORIDE
     Dates: start: 20210706, end: 20210710
  24. MAXOLON [Concomitant]
     Active Substance: METOCLOPRAMIDE HYDROCHLORIDE
     Dates: start: 20210707

REACTIONS (1)
  - Oedema peripheral [Recovered/Resolved]

NARRATIVE: CASE EVENT DATE: 20210713
